FAERS Safety Report 19489846 (Version 2)
Quarter: 2021Q3

REPORT INFORMATION
  Report Type: Spontaneous
  Country: US (occurrence: US)
  Receive Date: 20210704
  Receipt Date: 20210729
  Transmission Date: 20211014
  Serious: No
  Sender: FDA-Public Use
  Company Number: US-TEVA-2021-US-1930087

PATIENT
  Sex: Female

DRUGS (2)
  1. MESALAMINE TEVA [Suspect]
     Active Substance: MESALAMINE
     Indication: COLITIS
  2. MESALAMINE TEVA [Suspect]
     Active Substance: MESALAMINE
     Indication: ARTHRITIS
     Route: 065
     Dates: start: 202106

REACTIONS (4)
  - Gastrooesophageal reflux disease [Unknown]
  - Cough [Unknown]
  - Product use complaint [Unknown]
  - Product solubility abnormal [Unknown]
